FAERS Safety Report 25408304 (Version 1)
Quarter: 2025Q2

REPORT INFORMATION
  Report Type: Spontaneous
  Country: US (occurrence: US)
  Receive Date: 20250606
  Receipt Date: 20250606
  Transmission Date: 20250717
  Serious: No
  Sender: SANOFI AVENTIS
  Company Number: US-SA-2025SA159197

PATIENT
  Age: 23 Year
  Sex: Male

DRUGS (1)
  1. DUPIXENT [Suspect]
     Active Substance: DUPILUMAB
     Indication: Dermatitis allergic
     Dosage: 300 MG, QOW
     Route: 058
     Dates: start: 202502

REACTIONS (5)
  - Eczema [Unknown]
  - Erythema [Unknown]
  - Skin swelling [Unknown]
  - Dry skin [Unknown]
  - Pruritus [Unknown]

NARRATIVE: CASE EVENT DATE: 20250501
